FAERS Safety Report 14392041 (Version 1)
Quarter: 2018Q1

REPORT INFORMATION
  Report Type: Spontaneous
  Country: US (occurrence: US)
  Receive Date: 20180116
  Receipt Date: 20180116
  Transmission Date: 20180509
  Serious: No
  Sender: FDA-Public Use
  Company Number: US-GLAXOSMITHKLINE-US2018004331

PATIENT
  Age: 91 Year
  Sex: Male

DRUGS (1)
  1. ANORO ELLIPTA [Suspect]
     Active Substance: UMECLIDINIUM BROMIDE\VILANTEROL TRIFENATATE
     Indication: TOTAL LUNG CAPACITY DECREASED
     Dosage: 1 PUFF(S), QD
     Route: 055
     Dates: start: 20180103

REACTIONS (2)
  - Fatigue [Not Recovered/Not Resolved]
  - Product packaging confusion [Recovered/Resolved]

NARRATIVE: CASE EVENT DATE: 20180108
